FAERS Safety Report 12849584 (Version 1)
Quarter: 2016Q4

REPORT INFORMATION
  Report Type: Spontaneous
  Country: US (occurrence: US)
  Receive Date: 20161014
  Receipt Date: 20161014
  Transmission Date: 20170207
  Serious: No
  Sender: FDA-Public Use
  Company Number: US-ROCHE-1763606

PATIENT
  Sex: Female

DRUGS (7)
  1. ASPIRIN. [Concomitant]
     Active Substance: ASPIRIN
  2. LEVOTHYROXINE. [Concomitant]
     Active Substance: LEVOTHYROXINE
  3. ASA [Concomitant]
     Active Substance: ASPIRIN
  4. ESBRIET [Suspect]
     Active Substance: PIRFENIDONE
     Indication: IDIOPATHIC PULMONARY FIBROSIS
     Route: 048
     Dates: start: 20160526
  5. LOSARTAN/HCTZ [Concomitant]
     Active Substance: HYDROCHLOROTHIAZIDE\LOSARTAN
  6. SIMVASTATIN. [Concomitant]
     Active Substance: SIMVASTATIN
  7. FISH OIL [Concomitant]
     Active Substance: FISH OIL

REACTIONS (6)
  - Headache [Unknown]
  - Fatigue [Unknown]
  - Drug dose omission [Unknown]
  - Nausea [Unknown]
  - Pruritus [Unknown]
  - Dry skin [Unknown]
